FAERS Safety Report 20570401 (Version 2)
Quarter: 2022Q2

REPORT INFORMATION
  Report Type: Spontaneous
  Country: US (occurrence: US)
  Receive Date: 20220309
  Receipt Date: 20220407
  Transmission Date: 20220721
  Serious: No
  Sender: FDA-Public Use
  Company Number: US-JNJFOC-20220258915

PATIENT
  Age: 97 Year
  Sex: Female

DRUGS (4)
  1. XARELTO [Suspect]
     Active Substance: RIVAROXABAN
     Indication: Atrial fibrillation
     Route: 048
  2. XARELTO [Suspect]
     Active Substance: RIVAROXABAN
     Indication: Cerebrovascular accident prophylaxis
  3. XARELTO [Suspect]
     Active Substance: RIVAROXABAN
     Indication: Cardiac murmur
  4. XARELTO [Suspect]
     Active Substance: RIVAROXABAN
     Indication: Heart valve incompetence

REACTIONS (3)
  - Extra dose administered [Unknown]
  - Product label issue [Unknown]
  - Product dose omission issue [Unknown]

NARRATIVE: CASE EVENT DATE: 20220201
